FAERS Safety Report 11270229 (Version 1)
Quarter: 2015Q3

REPORT INFORMATION
  Report Type: Spontaneous
  Country: DE (occurrence: DE)
  Receive Date: 20150714
  Receipt Date: 20150714
  Transmission Date: 20151125
  Serious: Yes (Death)
  Sender: FDA-Public Use
  Company Number: DE-ABBVIE-13P-062-1036380-00

PATIENT

DRUGS (5)
  1. TORSEMIDE. [Concomitant]
     Active Substance: TORSEMIDE
  2. TORSEMIDE. [Concomitant]
     Active Substance: TORSEMIDE
     Dosage: TEMPORARILY
  3. TORSEMIDE. [Concomitant]
     Active Substance: TORSEMIDE
  4. DUODOPA [Suspect]
     Active Substance: CARBIDOPA\LEVODOPA
     Indication: PARKINSON^S DISEASE
     Dosage: 1 SACHET PER DAY
     Route: 050
     Dates: start: 200702
  5. TORSEMIDE. [Concomitant]
     Active Substance: TORSEMIDE
     Indication: PRODUCT USED FOR UNKNOWN INDICATION
     Dates: start: 201205

REACTIONS (4)
  - Cachexia [Fatal]
  - Parkinson^s disease [Fatal]
  - Muscle spasticity [Fatal]
  - Diarrhoea [Fatal]
